FAERS Safety Report 4835481-2 (Version None)
Quarter: 2005Q4

REPORT INFORMATION
  Report Type: 
  Country: None (occurrence: None)
  Receive Date: 20051121
  Receipt Date: 20051114
  Transmission Date: 20060501
  Serious: Yes (Death)
  Sender: FDA-Public Use
  Company Number: 2005131966

PATIENT
  Sex: Male

DRUGS (4)
  1. LIPITOR [Suspect]
     Indication: BLOOD CHOLESTEROL INCREASED
     Dosage: ORAL
     Route: 048
     Dates: end: 20050101
  2. ARICEPT [Suspect]
     Indication: DEMENTIA ALZHEIMER'S TYPE
     Dosage: ORAL
     Route: 048
     Dates: start: 20040301
  3. PHENOBARBITAL TAB [Concomitant]
  4. DILANTIN [Concomitant]

REACTIONS (4)
  - DEMENTIA ALZHEIMER'S TYPE [None]
  - DEPRESSION [None]
  - METASTASES TO BONE [None]
  - METASTASIS [None]
